FAERS Safety Report 10447985 (Version 10)
Quarter: 2015Q1

REPORT INFORMATION
  Report Type: Report from Study
  Country: FR (occurrence: FR)
  Receive Date: 20140911
  Receipt Date: 20150310
  Transmission Date: 20150720
  Serious: Yes (Hospitalization)
  Sender: FDA-Public Use
  Company Number: FR-MERCK-1403FRA010601

PATIENT
  Age: 52 Year
  Sex: Male
  Weight: 91 kg

DRUGS (14)
  1. PEMBROLIZUMAB. [Suspect]
     Active Substance: PEMBROLIZUMAB
     Dosage: 10 MG/KG, QOW
     Route: 042
     Dates: start: 20140327, end: 20140327
  2. TRIMEBUTINE [Concomitant]
     Active Substance: TRIMEBUTINE
     Indication: MUSCLE SPASMS
     Dosage: 100 MG, QD
     Route: 048
     Dates: start: 201401
  3. KENZEN [Concomitant]
     Active Substance: CANDESARTAN
     Indication: HYPERTENSION
     Dosage: 8 MG, QD
     Route: 048
     Dates: start: 20131126
  4. DUPHALAC [Concomitant]
     Active Substance: LACTULOSE
     Indication: CONSTIPATION
     Dosage: TOTAL DAILY DOSE: 10 G, AS NEEDED(PRN), FORMULATION: SOLUTION
     Route: 048
     Dates: start: 20140115, end: 20140212
  5. PEMBROLIZUMAB. [Suspect]
     Active Substance: PEMBROLIZUMAB
     Dosage: 10 MG/KG, QOW
     Route: 042
     Dates: start: 20140212, end: 20140212
  6. PEMBROLIZUMAB. [Suspect]
     Active Substance: PEMBROLIZUMAB
     Dosage: 10 MG/KG, QOW
     Route: 042
     Dates: start: 20140228, end: 20140228
  7. ABSTRAL [Concomitant]
     Active Substance: FENTANYL CITRATE
     Indication: PAIN
     Dosage: TOTAL DAILY DOSE 100 MG, PRN
     Route: 002
     Dates: start: 20131126
  8. ACETAMINOPHEN. [Concomitant]
     Active Substance: ACETAMINOPHEN
     Indication: PAIN
     Dosage: 1 G, QD
     Route: 048
     Dates: start: 20131230, end: 20140212
  9. DUROGESIC [Concomitant]
     Active Substance: FENTANYL
     Indication: PAIN
     Dosage: 25 MICROGRAM, FREQUENCY:OTHER
     Route: 061
     Dates: start: 20131126
  10. IXPRIM (ACETAMINOPHEN (+) TRAMADOL HYDROCHLORIDE) [Concomitant]
     Active Substance: ACETAMINOPHEN\TRAMADOL
     Indication: PAIN
     Dosage: TOTAL DAILY DOSE: 4 TABLETS, PRN
     Route: 048
     Dates: start: 20140129, end: 20140224
  11. PEMBROLIZUMAB. [Suspect]
     Active Substance: PEMBROLIZUMAB
     Indication: MALIGNANT MELANOMA
     Dosage: 10 MG/KG, QOW
     Route: 042
     Dates: start: 20131230, end: 20140129
  12. LEXOMIL [Concomitant]
     Active Substance: BROMAZEPAM
     Indication: ANXIETY
     Dosage: 0.5 TABLET, QD
     Route: 048
     Dates: start: 20131126, end: 20140311
  13. FRESUBIN ORIGINAL [Concomitant]
     Indication: MALNUTRITION
     Dosage: 1000 ML, TID, FORMULATION: SUSPENSION FOR INJECTION
     Route: 050
     Dates: start: 20140129, end: 20140313
  14. EUPANTOL [Concomitant]
     Active Substance: PANTOPRAZOLE SODIUM
     Indication: GASTRIC ULCER
     Dosage: 40 MG, QD
     Route: 048
     Dates: start: 20131126

REACTIONS (3)
  - Generalised oedema [Not Recovered/Not Resolved]
  - Hypoalbuminaemia [Not Recovered/Not Resolved]
  - Diarrhoea [Not Recovered/Not Resolved]

NARRATIVE: CASE EVENT DATE: 20140225
